FAERS Safety Report 18604081 (Version 1)
Quarter: 2020Q4

REPORT INFORMATION
  Report Type: Spontaneous
  Country: FR (occurrence: FR)
  Receive Date: 20201211
  Receipt Date: 20201211
  Transmission Date: 20210114
  Serious: Yes (Hospitalization)
  Sender: FDA-Public Use
  Company Number: FR-TEVA-2020-FR-1856542

PATIENT
  Age: 85 Year
  Sex: Female

DRUGS (3)
  1. CORTANCYL 20 MG, COMPRIME [Suspect]
     Active Substance: PREDNISONE
     Dosage: 1 DF
     Route: 048
     Dates: start: 2020
  2. IMUREL [Suspect]
     Active Substance: AZATHIOPRINE SODIUM
     Indication: ANTISYNTHETASE SYNDROME
     Dosage: 120 MG
     Route: 048
     Dates: start: 202006, end: 202011
  3. PANTOPRAZOLE [Suspect]
     Active Substance: PANTOPRAZOLE
     Indication: ABDOMINAL PAIN UPPER
     Dosage: 20 MG
     Route: 048
     Dates: start: 2020

REACTIONS (1)
  - Nervous system disorder [Not Recovered/Not Resolved]

NARRATIVE: CASE EVENT DATE: 202010
